FAERS Safety Report 5956183-5 (Version None)
Quarter: 2008Q4

REPORT INFORMATION
  Report Type: 
  Country: None (occurrence: None)
  Receive Date: 20081118
  Receipt Date: 20081112
  Transmission Date: 20090506
  Serious: Yes (Hospitalization, Other)
  Sender: FDA-Public Use
  Company Number: US-JNJFOC-20081103081

PATIENT
  Age: 86 Year
  Sex: Male

DRUGS (1)
  1. REMICADE [Suspect]
     Indication: RHEUMATOID ARTHRITIS
     Dosage: FOR 2-3 YEARS
     Route: 042

REACTIONS (3)
  - BACILLARY ANGIOMATOSIS [None]
  - FALL [None]
  - MENTAL STATUS CHANGES [None]
